FAERS Safety Report 17912689 (Version 4)
Quarter: 2020Q3

REPORT INFORMATION
  Report Type: Spontaneous
  Country: US (occurrence: US)
  Receive Date: 20200618
  Receipt Date: 20200807
  Transmission Date: 20201103
  Serious: Yes (Other)
  Sender: FDA-Public Use
  Company Number: US-PFIZER INC-2020236034

PATIENT
  Age: 19 Year
  Sex: Female
  Weight: 69.84 kg

DRUGS (2)
  1. DEPO?PROVERA [Suspect]
     Active Substance: MEDROXYPROGESTERONE ACETATE
     Indication: CONTRACEPTION
     Dosage: UNK
     Dates: start: 2012
  2. DEPO?PROVERA [Suspect]
     Active Substance: MEDROXYPROGESTERONE ACETATE
     Dosage: UNK
     Dates: start: 202004

REACTIONS (15)
  - Menometrorrhagia [Unknown]
  - Abdominal distension [Unknown]
  - Intentional device misuse [Unknown]
  - Depressed mood [Unknown]
  - Discomfort [Unknown]
  - Back pain [Unknown]
  - Adnexa uteri pain [Unknown]
  - Laziness [Unknown]
  - Weight increased [Unknown]
  - Pain [Unknown]
  - Muscle spasms [Unknown]
  - Frustration tolerance decreased [Unknown]
  - Nervousness [Unknown]
  - Feeling abnormal [Unknown]
  - Irritability [Unknown]

NARRATIVE: CASE EVENT DATE: 2012
